FAERS Safety Report 21670362 (Version 1)
Quarter: 2022Q4

REPORT INFORMATION
  Report Type: Spontaneous
  Country: GB (occurrence: GB)
  Receive Date: 20221201
  Receipt Date: 20221201
  Transmission Date: 20230112
  Serious: Yes (Other)
  Sender: FDA-Public Use
  Company Number: GB-JNJFOC-20221134653

PATIENT
  Age: 53 Year
  Sex: Male

DRUGS (47)
  1. BUDESONIDE [Suspect]
     Active Substance: BUDESONIDE
     Indication: Colitis ulcerative
     Dosage: 8 DOSAGE FORM, FREQUENCY : 1, THERAPY END DATE : NOT ASKED, FREQUENCY TIME : 8 WEEKS
     Route: 048
     Dates: start: 200707
  2. HYDROCORTISONE ACETATE [Suspect]
     Active Substance: HYDROCORTISONE ACETATE
     Indication: Colitis ulcerative
     Dosage: 1 DOSAGE FORM, FREQUENCY; 1, FREQUENCY TIME: 1 DAYS, THERAPY DURATION : 274 DAYS, THERAPY END DATE :
     Route: 065
     Dates: start: 201807
  3. HYDROCORTISONE ACETATE [Suspect]
     Active Substance: HYDROCORTISONE ACETATE
     Dosage: FREQUENCY; 1, FREQUENCY TIME: 1 DAYS, THERAPY DURATION : 274 DAYS,
     Route: 065
     Dates: start: 20160101, end: 20161001
  4. WARFARIN [Suspect]
     Active Substance: WARFARIN
     Indication: Colitis ulcerative
     Dosage: 8 DOSAGE FORM, FREQUENCY; 1, FREQUENCY TIME: 8 WEEKS, THERAPY END DATE: NOT ASKED
     Route: 048
     Dates: start: 201707
  5. ASACOL [Suspect]
     Active Substance: MESALAMINE
     Indication: Product used for unknown indication
     Dosage: 3 GRAM DAILY; 245, UNIT DOSE: 3 GM, FREQUENCY; 1 , FREQUENCY TIME: 1 DAYS, THERAPY END DATE : NOT AS
     Route: 065
     Dates: start: 20161001
  6. ASACOL [Suspect]
     Active Substance: MESALAMINE
     Indication: Colitis ulcerative
     Dosage: 6DOSAGE FORM(245), FREQUENCY; 1 , FREQUENCY TIME: 1 DAYS, THERAPY END DATE : NOT ASKED
     Route: 065
     Dates: start: 20161001
  7. ASACOL [Suspect]
     Active Substance: MESALAMINE
     Dosage: 2.4 GRAM DAILY; 1 DOSAGE FORM, UNIT DOSE: 2.4 G, FREQUENCY; 1, FREQUENCY TIME: 1 DAYS, THERAPY END D
     Route: 065
     Dates: start: 201707
  8. ASACOL [Suspect]
     Active Substance: MESALAMINE
     Dosage: 6 GRAM DAILY; 245, UNIT DOSE: 3 G, FREQUENCY; 1, FREQUENCY TIME: 12 HOURS, THERAPY END DATE: NOT ASK
     Route: 065
     Dates: start: 20161001
  9. ASACOL [Suspect]
     Active Substance: MESALAMINE
     Dosage: 4.8 GRAM DAILY; UNIT DOSE: 4.8 G, FREQUENCY; 1 , FREQUENCY TIME: 1 DAYS
     Route: 065
  10. ASACOL [Suspect]
     Active Substance: MESALAMINE
     Dosage: 2.4 GRAM DAILY; 245, UNIT DOSE: 2.4 G, FREQUENCY; 1 , FREQUENCY TIME: 1 DAYS, THERAPY END DATE : NOT
     Route: 065
     Dates: start: 20161001
  11. ADALIMUMAB [Suspect]
     Active Substance: ADALIMUMAB
     Indication: Product used for unknown indication
     Dosage: 120, THERAPY END DATE : NOT ASKED,  UNIT DOSE : 5 MG/KG, FREQUENCY ; 1 , FREQUENCY TIME : 8 WEEKS
     Route: 042
     Dates: start: 20171019
  12. CORTIFOAM [Suspect]
     Active Substance: HYDROCORTISONE ACETATE
     Indication: Colitis ulcerative
     Dosage: 1 DOSAGE FORM, FREQUENCY; 1 , FREQUENCY TIME: 1 DAYS, THERAPY END DATE : NOT ASKED
     Route: 048
     Dates: start: 201707
  13. HYDROCORTISONE ACETATE [Suspect]
     Active Substance: HYDROCORTISONE ACETATE
     Indication: Product used for unknown indication
     Dosage: 8 DOSAGE FORM, FREQUENCY ; 1 , FREQUENCY TIME : 8 WEEKS, THERAPY END DATE : NOT ASKED
     Route: 048
     Dates: start: 200707
  14. ENTYVIO [Suspect]
     Active Substance: VEDOLIZUMAB
     Indication: Colitis ulcerative
     Dosage: 200 UNK, THERAPY END DATE : NOT ASKED
     Route: 042
     Dates: start: 2017
  15. ENTYVIO [Suspect]
     Active Substance: VEDOLIZUMAB
     Indication: Product used for unknown indication
     Dosage: 200 UNK, THERAPY END DATE : NOT ASKED
     Route: 048
     Dates: start: 2017
  16. ENTYVIO [Suspect]
     Active Substance: VEDOLIZUMAB
     Dosage: 8 DOSAGE FORM, THERAPY END DATE : NOT ASKED, FREQUENCY ; 1 , FREQUENCY TIME : 8 WEEKS
     Route: 048
     Dates: start: 201807
  17. MESALAMINE [Suspect]
     Active Substance: MESALAMINE
     Indication: Colitis ulcerative
     Dosage: 4.8 GRAM DAILY; UNIT DOSE: 4.8 G, FREQUENCY ; 1 , FREQUENCY TIME : 1 DAYS, THERAPY DURATION : 4.088
     Route: 065
     Dates: start: 20160101, end: 201709
  18. MESALAMINE [Suspect]
     Active Substance: MESALAMINE
     Indication: Product used for unknown indication
     Dosage: THERAPY DURATION : 4.088 YEARS
     Route: 065
     Dates: start: 20160101, end: 20170901
  19. MESALAMINE [Suspect]
     Active Substance: MESALAMINE
     Dosage: 9.6 GRAM DAILY; 3 DOSAGE FORM, UNIT DOSE: 4.8 G, FREQUENCY ; 1 , FREQUENCY TIME : 0.5 DAYS, THERAPY
     Route: 065
     Dates: start: 201610
  20. MESALAMINE [Suspect]
     Active Substance: MESALAMINE
     Dosage: UNIT DOSE: 50  MG, THERAPY DURATION : 4.088 YEARS
     Route: 065
     Dates: start: 20160101, end: 20170901
  21. MESALAMINE [Suspect]
     Active Substance: MESALAMINE
     Dosage: UNIT DOSE: 50  MG, THERAPY DURATION : 4.088 YEARS
     Route: 065
     Dates: start: 20160101, end: 20161001
  22. MESALAMINE [Suspect]
     Active Substance: MESALAMINE
     Dosage: UNIT DOSE: 2.4 G, THERAPY DURATION : 4.088 YEARS, THERAPY END DATE : NOT ASKED
     Route: 065
     Dates: start: 20161001
  23. MESALAMINE [Suspect]
     Active Substance: MESALAMINE
     Dosage: 4.8 GRAM DAILY; 6 DOSAGE FORM, UNIT DOSE: 4.8 G, FREQUENCY ; 1 , FREQUENCY TIME : 1 DAYS, THERAPY DU
     Route: 065
     Dates: start: 20160101
  24. MESALAMINE [Suspect]
     Active Substance: MESALAMINE
     Dosage: THERAPY DURATION : 4.088 YEARS
     Route: 065
     Dates: start: 201709, end: 201709
  25. MESALAMINE [Suspect]
     Active Substance: MESALAMINE
     Indication: Colitis ulcerative
     Dosage: 245
     Route: 042
     Dates: start: 2017, end: 2017
  26. MESALAMINE [Suspect]
     Active Substance: MESALAMINE
     Dosage: 245, THERAPY END DATE : NOT ASKED
     Route: 048
     Dates: start: 20160101
  27. PREDNISONE [Suspect]
     Active Substance: PREDNISONE
     Indication: Colitis ulcerative
     Route: 042
     Dates: start: 2017, end: 2017
  28. PREDNISONE [Suspect]
     Active Substance: PREDNISONE
     Dosage: UNIT DOSE: 50 MG
     Route: 065
     Dates: start: 2009, end: 2009
  29. REMICADE [Suspect]
     Active Substance: INFLIXIMAB
     Indication: Crohn^s disease
     Dosage: 120, UNIT DOSE : 5 MG/KG, FREQUENCY ; 1 , FREQUENCY TIME : 8 WEEKS, THERAPY DURATION : 486 DAYS
     Route: 041
     Dates: start: 20170101, end: 20170901
  30. REMICADE [Suspect]
     Active Substance: INFLIXIMAB
     Indication: Colitis ulcerative
     Dosage: 120,  THERAPY DURATION : 486 DAYS, THERAPY END DATE : NOT ASKED
     Route: 041
     Dates: start: 201709
  31. REMICADE [Suspect]
     Active Substance: INFLIXIMAB
     Dosage: 120, FREQUENCY ; 1 , FREQUENCY TIME : 8 WEEKS, THERAPY DURATION : 486 DAYS
     Route: 041
     Dates: start: 20170101, end: 20170901
  32. VEDOLIZUMAB [Suspect]
     Active Substance: VEDOLIZUMAB
     Indication: Deep vein thrombosis
     Dosage: THERAPY END DATE : NOT ASKED
     Route: 065
     Dates: start: 2009
  33. WARFARIN SODIUM [Suspect]
     Active Substance: WARFARIN SODIUM
     Indication: Crohn^s disease
     Dosage: THERAPY END DATE : NOT ASKED
     Route: 048
     Dates: start: 201707
  34. WARFARIN SODIUM [Suspect]
     Active Substance: WARFARIN SODIUM
     Indication: Deep vein thrombosis
     Route: 065
     Dates: start: 2009, end: 2009
  35. WARFARIN SODIUM [Suspect]
     Active Substance: WARFARIN SODIUM
     Indication: Product used for unknown indication
     Dosage: THERAPY START DATE : NOT ASKED
     Route: 065
     Dates: end: 2019
  36. ALBENDAZOLE [Concomitant]
     Active Substance: ALBENDAZOLE
     Indication: Colitis ulcerative
     Dosage: 8 DOSAGE FORM, THERAPY DURATION : 7 YEARS
     Route: 048
     Dates: start: 20090101, end: 20160101
  37. ALBENDAZOLE [Concomitant]
     Active Substance: ALBENDAZOLE
     Indication: Crohn^s disease
     Dosage: 8 DOSAGE FORM, THERAPY DURATION : 7 YEARS
     Route: 048
  38. ALBENDAZOLE [Concomitant]
     Active Substance: ALBENDAZOLE
     Indication: Deep vein thrombosis
     Dosage: 231, THERAPY DURATION : 7 YEARS
  39. HUMIRA [Concomitant]
     Active Substance: ADALIMUMAB
     Indication: Crohn^s disease
     Dosage: 8 DOSAGE FORM
     Dates: start: 201707
  40. HUMIRA [Concomitant]
     Active Substance: ADALIMUMAB
     Indication: Deep vein thrombosis
     Dates: start: 201709, end: 201709
  41. METHOTREXATE [Concomitant]
     Active Substance: METHOTREXATE
     Indication: Product used for unknown indication
     Dosage: THERAPY DURATION : 7 YEARS
     Dates: start: 201709, end: 201709
  42. METHOTREXATE [Concomitant]
     Active Substance: METHOTREXATE
     Indication: Colitis ulcerative
     Dosage: THERAPY DURATION : 7 YEARS
     Dates: start: 20090101, end: 20160101
  43. SULFASALAZINE [Concomitant]
     Active Substance: SULFASALAZINE
     Indication: Product used for unknown indication
     Dosage: THERAPY DURATION : 7 YEARS
     Dates: start: 2009, end: 2016
  44. SULFASALAZINE [Concomitant]
     Active Substance: SULFASALAZINE
     Indication: Colitis ulcerative
     Dosage: 10 MILLIGRAM DAILY; UNIT DOSE : 5 MG, FREQUENCY ; 1 , FREQUENCY TIME :0.5 DAYS
  45. SULFASALAZINE [Concomitant]
     Active Substance: SULFASALAZINE
     Dates: start: 20160101
  46. SULFASALAZINE [Concomitant]
     Active Substance: SULFASALAZINE
     Dates: start: 201709, end: 201709
  47. XELJANZ [Concomitant]
     Active Substance: TOFACITINIB CITRATE
     Indication: Colitis ulcerative
     Dosage: 10 MILLIGRAM DAILY; UNIT DOSE: 5 MG, FREQUENCY ; 1 , FREQUENCY TIME : 0.5 DAYS
     Route: 048

REACTIONS (21)
  - Stress [Not Recovered/Not Resolved]
  - Impaired quality of life [Unknown]
  - Weight decreased [Unknown]
  - Rectal haemorrhage [Unknown]
  - Impaired work ability [Unknown]
  - Loss of personal independence in daily activities [Unknown]
  - Loss of personal independence in daily activities [Unknown]
  - Steroid dependence [Unknown]
  - Bronchiectasis [Unknown]
  - Haematochezia [Unknown]
  - Deep vein thrombosis [Unknown]
  - Colitis ulcerative [Unknown]
  - Colitis ulcerative [Unknown]
  - Condition aggravated [Unknown]
  - Frequent bowel movements [Unknown]
  - Drug ineffective [Unknown]
  - Product use in unapproved indication [Unknown]
  - Off label use [Unknown]
  - Intentional product use issue [Not Recovered/Not Resolved]
  - Inappropriate schedule of product administration [Not Recovered/Not Resolved]
  - Medication error [Unknown]
